FAERS Safety Report 12776930 (Version 1)
Quarter: 2016Q3

REPORT INFORMATION
  Report Type: Spontaneous
  Country: US (occurrence: US)
  Receive Date: 20160923
  Receipt Date: 20160923
  Transmission Date: 20161109
  Serious: No
  Sender: FDA-Public Use
  Company Number: US-PFIZER INC-2016447340

PATIENT
  Sex: Female

DRUGS (1)
  1. ADVIL [Suspect]
     Active Substance: IBUPROFEN
     Dosage: 2 DF, 2X/DAY

REACTIONS (5)
  - Product taste abnormal [Unknown]
  - Nervousness [Unknown]
  - Poor quality drug administered [Unknown]
  - Expired product administered [Unknown]
  - Product physical issue [Unknown]
